FAERS Safety Report 5373245-4 (Version None)
Quarter: 2007Q2

REPORT INFORMATION
  Report Type: 
  Country: None (occurrence: None)
  Receive Date: 20070628
  Receipt Date: 20070622
  Transmission Date: 20071010
  Serious: Yes (Life-Threatening, Hospitalization)
  Sender: FDA-Public Use
  Company Number: PHRM2007FR01618

PATIENT
  Age: 8 Year
  Sex: Male

DRUGS (6)
  1. VALPROATE SODIUM [Suspect]
     Indication: PARTIAL SEIZURES
     Dosage: UNK, UNK
     Route: 048
     Dates: start: 20020101, end: 20070528
  2. TRILEPTAL [Suspect]
     Indication: PARTIAL SEIZURES
     Dosage: 150 MG, BID
     Route: 048
     Dates: start: 20060101, end: 20070529
  3. EPITOMAX [Concomitant]
     Dosage: 7.5 MG, BID
     Route: 048
     Dates: start: 20050101
  4. LIORESAL [Concomitant]
  5. MOTILIUM [Concomitant]
     Route: 048
  6. MOVICOL [Concomitant]
     Route: 048

REACTIONS (17)
  - ALANINE AMINOTRANSFERASE INCREASED [None]
  - ASPARTATE AMINOTRANSFERASE INCREASED [None]
  - CONVULSION [None]
  - COUGH [None]
  - DEHYDRATION [None]
  - DIARRHOEA [None]
  - ELECTROENCEPHALOGRAM ABNORMAL [None]
  - FLUID REPLACEMENT [None]
  - HEPATIC FAILURE [None]
  - HEPATITIS [None]
  - INCREASED BRONCHIAL SECRETION [None]
  - LEUKOPENIA [None]
  - PETECHIAE [None]
  - PRODUCTIVE COUGH [None]
  - PYREXIA [None]
  - RENAL FAILURE ACUTE [None]
  - THROMBOCYTOPENIA [None]
